FAERS Safety Report 24876326 (Version 1)
Quarter: 2025Q1

REPORT INFORMATION
  Report Type: Spontaneous
  Country: RU (occurrence: RU)
  Receive Date: 20250123
  Receipt Date: 20250123
  Transmission Date: 20250409
  Serious: Yes (Life-Threatening)
  Sender: JOHNSON AND JOHNSON
  Company Number: RU-JNJFOC-20250159937

PATIENT
  Age: 58 Year
  Sex: Female
  Weight: 80 kg

DRUGS (1)
  1. DARZALEX [Suspect]
     Active Substance: DARATUMUMAB
     Indication: Product used for unknown indication
     Route: 058
     Dates: start: 20240529, end: 20240529

REACTIONS (3)
  - Bronchospasm [Recovered/Resolved]
  - Hypertension [Unknown]
  - Laryngospasm [Unknown]

NARRATIVE: CASE EVENT DATE: 20240529
